FAERS Safety Report 4930087-9 (Version None)
Quarter: 2006Q1

REPORT INFORMATION
  Report Type: 
  Country: None (occurrence: None)
  Receive Date: 20060228
  Receipt Date: 20060214
  Transmission Date: 20060701
  Serious: Yes (Hospitalization)
  Sender: FDA-Public Use
  Company Number: 2006P1000114

PATIENT
  Age: 62 Year
  Sex: Male
  Weight: 60 kg

DRUGS (5)
  1. RETEPLASE (RETEPLASE) [Suspect]
     Indication: ACUTE MYOCARDIAL INFARCTION
     Dosage: 5 IU; 1X; IVBOL; SEE IMAGE
     Route: 040
     Dates: start: 20041201, end: 20041202
  2. RETEPLASE (RETEPLASE) [Suspect]
     Indication: ACUTE MYOCARDIAL INFARCTION
     Dosage: 5 IU; 1X; IVBOL; SEE IMAGE
     Route: 040
     Dates: start: 20041202, end: 20041202
  3. ABCIXIMAB (ABCIXIMAB) [Suspect]
     Indication: ACUTE MYOCARDIAL INFARCTION
     Dosage: 7.5 ML; 1X; IVBOL; SEE IMAGE
     Route: 040
     Dates: start: 20041201, end: 20041202
  4. ABCIXIMAB (ABCIXIMAB) [Suspect]
     Indication: ACUTE MYOCARDIAL INFARCTION
     Dosage: 7.5 ML; 1X; IVBOL; SEE IMAGE
     Route: 040
     Dates: start: 20041201, end: 20041202
  5. HEPARIN [Concomitant]

REACTIONS (1)
  - HAEMOPTYSIS [None]
